FAERS Safety Report 14097321 (Version 1)
Quarter: 2017Q4

REPORT INFORMATION
  Report Type: Spontaneous
  Country: US (occurrence: US)
  Receive Date: 20171016
  Receipt Date: 20171016
  Transmission Date: 20180321
  Serious: No
  Sender: FDA-Public Use
  Company Number: US-AMGEN-USASP2016172389

PATIENT
  Age: 51 Year
  Sex: Female

DRUGS (2)
  1. PROLIA [Suspect]
     Active Substance: DENOSUMAB
     Indication: OSTEOPOROSIS POSTMENOPAUSAL
     Dosage: UNK
     Route: 065
     Dates: start: 201608
  2. VITAMINS [Concomitant]
     Active Substance: VITAMINS

REACTIONS (5)
  - Joint injury [Recovering/Resolving]
  - Hypersensitivity [Unknown]
  - Pain in extremity [Recovering/Resolving]
  - Joint stiffness [Recovering/Resolving]
  - Arthralgia [Recovering/Resolving]

NARRATIVE: CASE EVENT DATE: 2016
